FAERS Safety Report 7304282-8 (Version None)
Quarter: 2011Q1

REPORT INFORMATION
  Report Type: 
  Country: None (occurrence: None)
  Receive Date: 20110221
  Receipt Date: 20110209
  Transmission Date: 20110831
  Serious: Yes (Other)
  Sender: FDA-Public Use
  Company Number: US-BAYER-2011-014079

PATIENT
  Sex: Female

DRUGS (1)
  1. MIRENA [Suspect]
     Indication: CONTRACEPTION
     Dosage: CONTINUOUSLY
     Route: 015
     Dates: start: 20100714, end: 20100802

REACTIONS (3)
  - HORMONE LEVEL ABNORMAL [None]
  - PYREXIA [None]
  - CHILLS [None]
